FAERS Safety Report 7673233-9 (Version None)
Quarter: 2011Q3

REPORT INFORMATION
  Report Type: 
  Country: None (occurrence: None)
  Receive Date: 20110810
  Receipt Date: 20110805
  Transmission Date: 20111222
  Serious: Yes (Hospitalization, Other)
  Sender: FDA-Public Use
  Company Number: US-PFIZER INC-2011180170

PATIENT
  Sex: Male
  Weight: 90.7 kg

DRUGS (7)
  1. MINOCYCLINE [Concomitant]
     Dosage: 100 MG, UNK
  2. VITAMIN D2 [Concomitant]
     Dosage: 1.25 MG, UNK
  3. SUTENT [Suspect]
     Indication: RENAL CANCER
     Dosage: UNK
     Route: 048
  4. SYNTHROID [Concomitant]
     Dosage: 25 MG, UNK
  5. PREVACID [Concomitant]
     Dosage: 20 MG, UNK
  6. POTASSIUM PHOSPHATES [Concomitant]
     Dosage: UNK
  7. SENNA PLUS [Concomitant]
     Dosage: UNK

REACTIONS (3)
  - BLOOD COUNT ABNORMAL [None]
  - BLOOD PRESSURE INCREASED [None]
  - ACTIVITIES OF DAILY LIVING IMPAIRED [None]
